FAERS Safety Report 5334253-2 (Version None)
Quarter: 2007Q2

REPORT INFORMATION
  Report Type: 
  Country: None (occurrence: None)
  Receive Date: 20070525
  Receipt Date: 20070516
  Transmission Date: 20071010
  Serious: Yes (Other)
  Sender: FDA-Public Use
  Company Number: DEWYE663116MAY07

PATIENT
  Age: 20 Year
  Sex: Female

DRUGS (3)
  1. TAVOR [Suspect]
     Dosage: 4 TABLETS (2 MG)
     Route: 048
     Dates: start: 20070515, end: 20070515
  2. RISPERDAL [Suspect]
     Dosage: UNKNOWN
     Route: 048
     Dates: start: 20070515, end: 20070515
  3. TREVILOR [Suspect]
     Dosage: UNKNOWN
     Route: 048
     Dates: start: 20070515, end: 20070515

REACTIONS (1)
  - DRUG ABUSER [None]
